FAERS Safety Report 25593436 (Version 2)
Quarter: 2025Q3

REPORT INFORMATION
  Report Type: Spontaneous
  Country: US (occurrence: US)
  Receive Date: 20250722
  Receipt Date: 20250725
  Transmission Date: 20251020
  Serious: Yes (Hospitalization, Other)
  Sender: ORGANON
  Company Number: US-ORGANON-O2507USA001805

PATIENT
  Age: 35 Year
  Sex: Female

DRUGS (11)
  1. GANIRELIX ACETATE [Suspect]
     Active Substance: GANIRELIX ACETATE
     Dosage: INJECT 250 MCG UNDER THE SKIN (SUBCUTANEOUS INJECTION) ONCE DAILY
     Route: 058
     Dates: start: 20250311, end: 20250710
  2. FOLLISTIM AQ [Concomitant]
     Active Substance: FOLLITROPIN
  3. PREGNYL [Concomitant]
     Active Substance: CHORIOGONADOTROPIN ALFA
  4. STERILE WATER FOR INJECTION [Concomitant]
     Active Substance: WATER
  5. ENDOMETRIN [Concomitant]
     Active Substance: PROGESTERONE
  6. ENSKYCE [Concomitant]
     Active Substance: DESOGESTREL\ETHINYL ESTRADIOL
  7. ESTRADIOL [Concomitant]
     Active Substance: ESTRADIOL
  8. HAILEY 24 FE [Concomitant]
     Active Substance: ETHINYL ESTRADIOL\NORETHINDRONE ACETATE
  9. LEUPROLIDE ACETATE [Concomitant]
     Active Substance: LEUPROLIDE ACETATE
  10. MENOPUR [Concomitant]
     Active Substance: FOLLITROPIN\LUTEINIZING HORMONE
  11. FOLIC ACID\IRON\MINERALS\VITAMINS [Concomitant]
     Active Substance: FOLIC ACID\IRON\MINERALS\VITAMINS

REACTIONS (3)
  - Injection site pain [Unknown]
  - Injection site reaction [Unknown]
  - Abscess drainage [Recovered/Resolved]

NARRATIVE: CASE EVENT DATE: 20250711
